FAERS Safety Report 5830876-2 (Version None)
Quarter: 2008Q3

REPORT INFORMATION
  Report Type: 
  Country: None (occurrence: None)
  Receive Date: 20080801
  Receipt Date: 20080721
  Transmission Date: 20090109
  Serious: Yes (Hospitalization)
  Sender: FDA-Public Use
  Company Number: US-PFIZER INC-2004236057US

PATIENT
  Age: 72 Year
  Sex: Female

DRUGS (7)
  1. CELEBREX [Suspect]
     Indication: OSTEOARTHRITIS
     Route: 048
  2. DILTIAZEM HCL [Concomitant]
  3. LOVASTATIN [Concomitant]
  4. LANSOPRAZOLE [Concomitant]
  5. ENALAPRIL MALEATE [Concomitant]
  6. ASCORBIC ACID [Concomitant]
  7. IRON [Concomitant]

REACTIONS (2)
  - HAMARTOMA [None]
  - INTESTINAL DIAPHRAGM DISEASE [None]
